FAERS Safety Report 18999950 (Version 1)
Quarter: 2021Q1

REPORT INFORMATION
  Report Type: Spontaneous
  Country: CN (occurrence: CN)
  Receive Date: 20210312
  Receipt Date: 20210312
  Transmission Date: 20210420
  Serious: Yes (Hospitalization)
  Sender: FDA-Public Use
  Company Number: CN-EMD SERONO-9223843

PATIENT
  Age: 63 Year
  Sex: Female

DRUGS (10)
  1. APIDRA [Suspect]
     Active Substance: INSULIN GLULISINE
     Indication: TYPE 2 DIABETES MELLITUS
     Dosage: PRE?FILLED
     Route: 058
     Dates: start: 20210226, end: 20210228
  2. PREDNISONE ACETATE [Concomitant]
     Active Substance: PREDNISONE ACETATE
     Indication: IMMUNE THROMBOCYTOPENIA
     Route: 048
  3. GLIMEPIRIDE. [Suspect]
     Active Substance: GLIMEPIRIDE
     Indication: TYPE 2 DIABETES MELLITUS
     Route: 048
     Dates: start: 20210226
  4. HUMULIN N [Suspect]
     Active Substance: INSULIN HUMAN
     Indication: TYPE 2 DIABETES MELLITUS
     Route: 058
     Dates: start: 20210226, end: 20210228
  5. HUMULIN N [Suspect]
     Active Substance: INSULIN HUMAN
     Route: 058
     Dates: start: 2021
  6. APIDRA [Suspect]
     Active Substance: INSULIN GLULISINE
     Dosage: 3U?5U?8U?DOSE DECREASED
     Route: 058
  7. APIDRA [Suspect]
     Active Substance: INSULIN GLULISINE
     Dosage: PRE?FILLED
     Route: 058
     Dates: start: 20210226, end: 20210228
  8. CICLOSPORIN [Concomitant]
     Active Substance: CYCLOSPORINE
     Indication: IMMUNE THROMBOCYTOPENIA
     Route: 048
  9. APIDRA [Suspect]
     Active Substance: INSULIN GLULISINE
     Dosage: PRE?FILLED
     Route: 058
     Dates: start: 20210226, end: 20210228
  10. GLUCOPHAGE [Suspect]
     Active Substance: METFORMIN HYDROCHLORIDE
     Indication: TYPE 2 DIABETES MELLITUS
     Route: 048
     Dates: start: 20210226

REACTIONS (1)
  - Hypoglycaemia [Recovered/Resolved]

NARRATIVE: CASE EVENT DATE: 20210228
